FAERS Safety Report 6636485-X (Version None)
Quarter: 2010Q1

REPORT INFORMATION
  Report Type: 
  Country: None (occurrence: None)
  Receive Date: 20100316
  Receipt Date: 20100310
  Transmission Date: 20100710
  Serious: Yes (Hospitalization)
  Sender: FDA-Public Use
  Company Number: US-B.I. PHARMACEUTICALS,INC./RIDGEFIELD-2010-BP-02195BP

PATIENT
  Age: 57 Year
  Sex: Female

DRUGS (4)
  1. SPIRIVA [Suspect]
     Indication: CHRONIC OBSTRUCTIVE PULMONARY DISEASE
     Dosage: 18 MCG
     Route: 055
     Dates: start: 20060501
  2. SPIRIVA [Suspect]
     Indication: EMPHYSEMA
  3. NASONEX [Concomitant]
     Dates: start: 20060101
  4. PROAIR HFA [Concomitant]

REACTIONS (2)
  - GALLBLADDER DISORDER [None]
  - OSTEOPENIA [None]
